FAERS Safety Report 6086960-4 (Version None)
Quarter: 2009Q1

REPORT INFORMATION
  Report Type: 
  Country: None (occurrence: None)
  Receive Date: 20090223
  Receipt Date: 20090211
  Transmission Date: 20090719
  Serious: Yes (Other)
  Sender: FDA-Public Use
  Company Number: US-ROCHE-614040

PATIENT
  Age: 79 Year
  Sex: Female

DRUGS (5)
  1. BONIVA [Suspect]
     Indication: OSTEOPOROSIS
     Route: 065
     Dates: start: 20080701, end: 20081201
  2. INSULIN [Concomitant]
     Dosage: DRUG: INSULIN (SOLASAR)
  3. ASPIRIN [Concomitant]
  4. LASIX [Concomitant]
  5. METOPROLOL TARTRATE [Concomitant]

REACTIONS (1)
  - RENAL DISORDER [None]
